FAERS Safety Report 7898888-5 (Version None)
Quarter: 2011Q4

REPORT INFORMATION
  Report Type: 
  Country: None (occurrence: None)
  Receive Date: 20111107
  Receipt Date: 20111031
  Transmission Date: 20120403
  Serious: Yes (Other)
  Sender: FDA-Public Use
  Company Number: GB-UCBSA-042739

PATIENT
  Age: 73 Year
  Sex: Female

DRUGS (14)
  1. ASPIRIN [Concomitant]
     Route: 048
  2. CIMZIA [Suspect]
     Route: 058
     Dates: start: 20110321, end: 20110705
  3. FOLIC ACID [Concomitant]
     Dosage: DOSE PER INTAKE:5 MG ; NO. OF INTAKES:3/7
     Route: 048
  4. LELUNOMIDE [Concomitant]
  5. AMITRIPTYLINE HCL [Concomitant]
     Indication: PAIN
     Dosage: 30 MG EVERY NIGHT
     Route: 048
  6. FENTANYL-100 [Concomitant]
     Indication: PAIN
     Dosage: TOPICAL PATCH
     Route: 061
  7. CIMZIA [Suspect]
     Indication: RHEUMATOID ARTHRITIS
     Route: 058
     Dates: start: 20101208
  8. METHOTREXATE [Concomitant]
     Indication: RHEUMATOID ARTHRITIS
     Route: 048
  9. SULFASALAZINE [Concomitant]
     Indication: RHEUMATOID ARTHRITIS
     Route: 048
  10. SIMVASTATIN [Concomitant]
     Indication: BLOOD CHOLESTEROL
     Route: 048
  11. CIMZIA [Suspect]
     Route: 058
     Dates: start: 20110126, end: 20110301
  12. AMLODIPINE [Concomitant]
     Indication: BLOOD PRESSURE INCREASED
     Route: 048
  13. GABAPENTIN [Concomitant]
     Indication: PAIN
     Route: 048
  14. LANSOPRAZOLE [Concomitant]
     Indication: GASTRITIS PROPHYLAXIS
     Route: 048

REACTIONS (4)
  - HUMERUS FRACTURE [None]
  - DRUG INEFFECTIVE [None]
  - FALL [None]
  - BRONCHITIS VIRAL [None]
